FAERS Safety Report 8489592-3 (Version None)
Quarter: 2012Q3

REPORT INFORMATION
  Report Type: 
  Country: None (occurrence: None)
  Receive Date: 20120705
  Receipt Date: 20120626
  Transmission Date: 20120928
  Serious: Yes (Other)
  Sender: FDA-Public Use
  Company Number: US-JNJFOC-20120403922

PATIENT
  Sex: Female
  Weight: 51.26 kg

DRUGS (2)
  1. PANCREAZE [Suspect]
     Indication: CYSTIC FIBROSIS
     Dosage: BEFORE MEALS OR SNACKS, STARTED ON AN UNSPECIFIED DATE LONG AGO
     Route: 048
  2. UNKNOWN MEDICATION [Concomitant]
     Indication: PRODUCT USED FOR UNKNOWN INDICATION
     Route: 065

REACTIONS (5)
  - PRODUCT CONTAINER ISSUE [None]
  - METABOLIC DISORDER [None]
  - WEIGHT INCREASED [None]
  - RESPIRATORY FAILURE [None]
  - DRUG DOSE OMISSION [None]
